FAERS Safety Report 4532356-3 (Version None)
Quarter: 2004Q4

REPORT INFORMATION
  Report Type: 
  Country: None (occurrence: None)
  Receive Date: 20041220
  Receipt Date: 20041216
  Transmission Date: 20050328
  Serious: Yes (Hospitalization)
  Sender: FDA-Public Use
  Company Number: GB-MERCK-0412USA02056

PATIENT
  Age: 57 Year
  Sex: Female

DRUGS (3)
  1. PRINIVIL [Suspect]
     Indication: HYPERTENSION
     Route: 048
  2. BENDROFLUMETHIAZIDE [Concomitant]
     Route: 065
  3. HORMONES (UNSPECIFIED) [Concomitant]
     Route: 065

REACTIONS (6)
  - ANGIONEUROTIC OEDEMA [None]
  - BLOOD PRESSURE ABNORMAL [None]
  - DYSPNOEA [None]
  - HYPERTENSION [None]
  - LARYNGEAL OEDEMA [None]
  - POST PROCEDURAL COMPLICATION [None]
